FAERS Safety Report 13834226 (Version 1)
Quarter: 2017Q3

REPORT INFORMATION
  Report Type: Spontaneous
  Country: US (occurrence: US)
  Receive Date: 20170804
  Receipt Date: 20170804
  Transmission Date: 20171127
  Serious: No
  Sender: FDA-Public Use
  Company Number: US-PFIZER INC-2017333848

PATIENT
  Age: 61 Year
  Sex: Female

DRUGS (1)
  1. METHOTREXATE SODIUM. [Suspect]
     Active Substance: METHOTREXATE SODIUM
     Dosage: 6 DF (TABS), WEEKLY

REACTIONS (15)
  - Chronic obstructive pulmonary disease [Unknown]
  - Myalgia [Unknown]
  - Musculoskeletal stiffness [Unknown]
  - Joint stiffness [Unknown]
  - Feeling cold [Unknown]
  - Joint swelling [Unknown]
  - Productive cough [Unknown]
  - Pyrexia [Unknown]
  - Fatigue [Unknown]
  - Back pain [Unknown]
  - Upper respiratory tract infection [Unknown]
  - Alopecia [Unknown]
  - Arthralgia [Unknown]
  - Pain in jaw [Unknown]
  - Synovial disorder [Unknown]

NARRATIVE: CASE EVENT DATE: 201503
